FAERS Safety Report 24365655 (Version 2)
Quarter: 2024Q4

REPORT INFORMATION
  Report Type: Spontaneous
  Country: GB (occurrence: GB)
  Receive Date: 20240926
  Receipt Date: 20241003
  Transmission Date: 20250115
  Serious: No
  Sender: MERCK
  Company Number: GB-009507513-2409GBR007937

PATIENT
  Age: 19 Year
  Sex: Male
  Weight: 75.5 kg

DRUGS (28)
  1. PREVYMIS [Suspect]
     Active Substance: LETERMOVIR
     Indication: Antiviral prophylaxis
     Dosage: 240 MILLIGRAM, QD
     Dates: start: 20240921
  2. ACYCLOVIR [Concomitant]
     Active Substance: ACYCLOVIR
     Indication: Antiviral prophylaxis
     Dosage: 400 MILLIGRAM, BID
     Route: 048
     Dates: start: 20240912
  3. ACYCLOVIR [Concomitant]
     Active Substance: ACYCLOVIR
     Dosage: 400 MILLIGRAM, BID
     Dates: start: 20240912
  4. CYCLOSPORINE [Concomitant]
     Active Substance: CYCLOSPORINE
     Indication: Prophylaxis against graft versus host disease
     Dosage: 95 MILLIGRAM, BID
     Route: 042
     Dates: start: 20240912
  5. LEVOFLOXACIN [Concomitant]
     Active Substance: LEVOFLOXACIN
     Indication: Opportunistic infection prophylaxis
     Dosage: 500 MILLIGRAM, QD
     Route: 048
     Dates: start: 20240919
  6. LEVOFLOXACIN [Concomitant]
     Active Substance: LEVOFLOXACIN
     Dosage: 500 MILLIGRAM, QD
     Dates: start: 20240919
  7. POSACONAZOLE [Concomitant]
     Active Substance: POSACONAZOLE
     Indication: Antifungal prophylaxis
     Dosage: 200 MILLIGRAM, QD
     Route: 048
     Dates: start: 20240912, end: 20240919
  8. POSACONAZOLE [Concomitant]
     Active Substance: POSACONAZOLE
     Indication: Antifungal prophylaxis
     Dosage: 200 MILLIGRAM, TID
     Dates: start: 20240919
  9. PRAVASTATIN [Concomitant]
     Active Substance: PRAVASTATIN
     Indication: Prophylaxis against graft versus host disease
     Dosage: 40 MILLIGRAM, QD
     Route: 048
     Dates: start: 20240912
  10. PRAVASTATIN [Concomitant]
     Active Substance: PRAVASTATIN
     Dosage: 40 MILLIGRAM, QD
     Dates: start: 20240912
  11. TESTOSTERONE [Concomitant]
     Active Substance: TESTOSTERONE
     Indication: Endocrine disorder
     Dosage: 2 PUMPS; QD
     Route: 061
  12. URSODIOL [Concomitant]
     Active Substance: URSODIOL
     Indication: Acute graft versus host disease in liver
     Dosage: 250 MILLIGRAM, BID
     Route: 048
     Dates: start: 20240912
  13. URSODIOL [Concomitant]
     Active Substance: URSODIOL
     Dosage: 250 MILLIGRAM, BID
     Dates: start: 20240912
  14. DERMOL [Concomitant]
     Active Substance: BENZALKONIUM CHLORIDE\CHLORHEXIDINE HYDROCHLORIDE\ISOPROPYL MYRISTATE\PARAFFIN
     Indication: Skin disorder
     Dosage: APPLY AS REQUIRED
     Route: 061
     Dates: start: 20240912
  15. LEVOMEPROMAZINE [Concomitant]
     Active Substance: LEVOMEPROMAZINE
     Indication: Vomiting
     Dosage: 6.25 MILLIGRAM, BID; AS REQUIRED
     Route: 058
     Dates: start: 20240912
  16. METOCLOPRAMIDE [Concomitant]
     Active Substance: METOCLOPRAMIDE
     Indication: Vomiting
     Dosage: 10 MILLIGRAM, TID AS NEEDED
     Route: 048
     Dates: start: 20240912
  17. METOCLOPRAMIDE [Concomitant]
     Active Substance: METOCLOPRAMIDE
     Dosage: 10 MILLIGRAM, TID IF NEEDED
     Route: 042
     Dates: start: 20240912
  18. METOCLOPRAMIDE [Concomitant]
     Active Substance: METOCLOPRAMIDE
     Dosage: 10 MILLIGRAM, TID IF NEEDED
     Dates: start: 20240912
  19. MORPHINE SULFATE [Concomitant]
     Active Substance: MORPHINE SULFATE
     Indication: Analgesic therapy
     Dosage: 10 MILLIGRAM, Q4H IF NEEDED
     Route: 048
     Dates: start: 20240912
  20. MORPHINE SULFATE [Concomitant]
     Active Substance: MORPHINE SULFATE
     Dosage: 10 MILLIGRAM, Q4H IF NEEDED
     Dates: start: 20240912
  21. NALOXONE [Concomitant]
     Active Substance: NALOXONE
     Indication: Toxicity to various agents
     Dosage: UP TO 2 MG IF REQUIRED
     Route: 042
     Dates: start: 20240912
  22. ONDANSETRON [Concomitant]
     Active Substance: ONDANSETRON
     Indication: Vomiting
     Dosage: 8 MILLIGRAM, BID IF NEEDED
     Route: 048
     Dates: start: 20240912
  23. ONDANSETRON [Concomitant]
     Active Substance: ONDANSETRON
     Dosage: 8 MILLIGRAM, BID IF NEEDED
     Dates: start: 20240912
  24. ONDANSETRON [Concomitant]
     Active Substance: ONDANSETRON
     Dosage: 8 MILLIGRAM, BID IF NEEDED
     Route: 042
     Dates: start: 20240912
  25. MEPERIDINE [Concomitant]
     Active Substance: MEPERIDINE
     Indication: Cytokine release syndrome
     Dosage: 25 MILLIGRAM, Q4H IF NEEDED
     Route: 042
     Dates: start: 20240912
  26. ALEMTUZUMAB [Concomitant]
     Active Substance: ALEMTUZUMAB
     Indication: Stem cell transplant
     Dosage: 30 MILLIGRAM
     Route: 042
     Dates: start: 20240912, end: 20240913
  27. ETOPOPHOS [Concomitant]
     Active Substance: ETOPOSIDE PHOSPHATE
     Indication: Stem cell transplant
     Dosage: 4560 MILLIGRAM
     Route: 042
     Dates: start: 20240913, end: 20240913
  28. METHOTREXATE [Concomitant]
     Active Substance: METHOTREXATE
     Indication: Immunosuppression
     Dosage: 27.5 MILLIGRAM
     Route: 042
     Dates: start: 20240921, end: 20240921

REACTIONS (1)
  - Incorrect route of product administration [Unknown]

NARRATIVE: CASE EVENT DATE: 20240921
